FAERS Safety Report 25329780 (Version 2)
Quarter: 2025Q3

REPORT INFORMATION
  Report Type: Report from Study
  Country: CA (occurrence: CA)
  Receive Date: 20250519
  Receipt Date: 20250723
  Transmission Date: 20251020
  Serious: Yes (Other)
  Sender: TAKEDA
  Company Number: CA-TAKEDA-2018TUS012850

PATIENT
  Sex: Female

DRUGS (27)
  1. VEDOLIZUMAB [Suspect]
     Active Substance: VEDOLIZUMAB
     Indication: Colitis ulcerative
  2. VEDOLIZUMAB [Suspect]
     Active Substance: VEDOLIZUMAB
  3. VEDOLIZUMAB [Suspect]
     Active Substance: VEDOLIZUMAB
  4. VEDOLIZUMAB [Suspect]
     Active Substance: VEDOLIZUMAB
  5. VEDOLIZUMAB [Suspect]
     Active Substance: VEDOLIZUMAB
  6. VEDOLIZUMAB [Suspect]
     Active Substance: VEDOLIZUMAB
  7. VEDOLIZUMAB [Suspect]
     Active Substance: VEDOLIZUMAB
  8. VEDOLIZUMAB [Suspect]
     Active Substance: VEDOLIZUMAB
  9. VEDOLIZUMAB [Suspect]
     Active Substance: VEDOLIZUMAB
  10. VEDOLIZUMAB [Suspect]
     Active Substance: VEDOLIZUMAB
  11. VEDOLIZUMAB [Suspect]
     Active Substance: VEDOLIZUMAB
  12. VEDOLIZUMAB [Suspect]
     Active Substance: VEDOLIZUMAB
  13. VEDOLIZUMAB [Suspect]
     Active Substance: VEDOLIZUMAB
  14. PAXIL [Concomitant]
     Active Substance: PAROXETINE HYDROCHLORIDE
  15. Salofalk [Concomitant]
  16. ASACOL [Concomitant]
     Active Substance: MESALAMINE
  17. CORTIFOAM [Concomitant]
     Active Substance: HYDROCORTISONE ACETATE
  18. BUDESONIDE [Concomitant]
     Active Substance: BUDESONIDE
  19. RAMIPRIL [Concomitant]
     Active Substance: RAMIPRIL
  20. PROGESTERONE [Concomitant]
     Active Substance: PROGESTERONE
  21. ROSUVASTATIN [Concomitant]
     Active Substance: ROSUVASTATIN
  22. TOPIRAMATE [Concomitant]
     Active Substance: TOPIRAMATE
  23. AMITRIPTYLINE [Concomitant]
     Active Substance: AMITRIPTYLINE
  24. DOVONEX [Concomitant]
     Active Substance: CALCIPOTRIENE
  25. BETAMETHASONE DIPROPIONATE\CALCIPOTRIENE MONOHYDRATE [Concomitant]
     Active Substance: BETAMETHASONE DIPROPIONATE\CALCIPOTRIENE MONOHYDRATE
  26. ESTROGEL [Concomitant]
     Active Substance: ESTRADIOL
  27. AZITHROMYCIN [Concomitant]
     Active Substance: AZITHROMYCIN
     Indication: Pneumonia

REACTIONS (4)
  - Haematochezia [Unknown]
  - Frequent bowel movements [Recovered/Resolved]
  - Abdominal pain lower [Recovered/Resolved]
  - Stress [Unknown]
